FAERS Safety Report 22289535 (Version 5)
Quarter: 2024Q2

REPORT INFORMATION
  Report Type: Spontaneous
  Country: DE (occurrence: DE)
  Receive Date: 20230505
  Receipt Date: 20240612
  Transmission Date: 20240716
  Serious: Yes (Hospitalization, Other)
  Sender: FDA-Public Use
  Company Number: DE-UCBSA-2023019737

PATIENT
  Age: 6 Year
  Sex: Male
  Weight: 2 kg

DRUGS (16)
  1. OXCARBAZEPINE [Suspect]
     Active Substance: OXCARBAZEPINE
     Indication: Generalised tonic-clonic seizure
     Dosage: 0.25 MILLIGRAM/KILOGRAM, ONCE DAILY (QD)
     Route: 065
  2. FOSPHENYTOIN [Suspect]
     Active Substance: FOSPHENYTOIN
     Indication: Generalised tonic-clonic seizure
     Dosage: 0.06 MILLIGRAM/KILOGRAM, QD (0.11 MG/KG/DAY)
     Route: 042
  3. FOSPHENYTOIN [Suspect]
     Active Substance: FOSPHENYTOIN
     Dosage: EXACT DOSE NOT AVAILABLE
     Route: 042
  4. LORAZEPAM [Suspect]
     Active Substance: LORAZEPAM
     Indication: Generalised tonic-clonic seizure
     Dosage: 0.1 MILLIGRAM/KILOGRAM
     Route: 042
  5. CLOBAZAM [Suspect]
     Active Substance: CLOBAZAM
     Indication: Generalised tonic-clonic seizure
     Dosage: 0.11 MILLIGRAM/KILOGRAM, ONCE DAILY (QD)
     Route: 065
  6. CLOBAZAM [Suspect]
     Active Substance: CLOBAZAM
     Dosage: 0.06 MILLIGRAM/KILOGRAM, QD
     Route: 065
  7. PHENOBARBITAL [Suspect]
     Active Substance: PHENOBARBITAL
     Indication: Generalised tonic-clonic seizure
     Dosage: 5 MILLIGRAM/KILOGRAM, QD
     Route: 048
  8. MIDAZOLAM [Suspect]
     Active Substance: MIDAZOLAM
     Indication: Generalised tonic-clonic seizure
     Dosage: 5 MILLIGRAM
     Route: 048
  9. PHENOBARBITAL [Suspect]
     Active Substance: PHENOBARBITAL
     Indication: Generalised tonic-clonic seizure
     Dosage: 10 MILLIGRAM/KILOGRAM, QD
     Route: 042
  10. LACOSAMIDE [Concomitant]
     Active Substance: LACOSAMIDE
     Indication: Generalised tonic-clonic seizure
     Dosage: 2 MILLIGRAM/KILOGRAM, QD, 2 MG/KG/DAY
     Route: 042
  11. LEVETIRACETAM [Concomitant]
     Active Substance: LEVETIRACETAM
     Indication: Generalised tonic-clonic seizure
     Dosage: 40 MILLIGRAM/KILOGRAM, QD, 40 MG/KG/DAY
     Route: 042
  12. LEVETIRACETAM [Concomitant]
     Active Substance: LEVETIRACETAM
     Dosage: 60 MILLIGRAM/KILOGRAM, QD
     Route: 042
  13. LEVETIRACETAM [Concomitant]
     Active Substance: LEVETIRACETAM
     Dosage: 60 MILLIGRAM/KILOGRAM, QD, 60 MG/KG/DAY
     Route: 042
  14. VALPROIC ACID [Concomitant]
     Active Substance: VALPROIC ACID
     Indication: Generalised tonic-clonic seizure
     Dosage: 10 MILLIGRAM/KILOGRAM, QD, 10 MG/KG/DAY
     Route: 048
  15. CLONAZEPAM [Concomitant]
     Active Substance: CLONAZEPAM
     Indication: Generalised tonic-clonic seizure
     Dosage: 0.06 MILLIGRAM/KILOGRAM, QD, 0.06 MG/KG/DAY
     Route: 042
  16. VALPROIC ACID [Concomitant]
     Active Substance: VALPROIC ACID
     Indication: Generalised tonic-clonic seizure
     Dosage: 10 MILLIGRAM/KILOGRAM, QD
     Route: 042

REACTIONS (10)
  - Status epilepticus [Unknown]
  - Generalised tonic-clonic seizure [Recovered/Resolved]
  - Hypoxia [Unknown]
  - Bradypnoea [Unknown]
  - Drug ineffective [Unknown]
  - Disease progression [Unknown]
  - Rash [Unknown]
  - Muscle spasms [Unknown]
  - Oxygen saturation decreased [Unknown]
  - Hepatic enzyme increased [Unknown]
